FAERS Safety Report 9068842 (Version 1)
Quarter: 2013Q1

REPORT INFORMATION
  Report Type: Spontaneous
  Country: FR (occurrence: FR)
  Receive Date: 20130215
  Receipt Date: 20130215
  Transmission Date: 20140127
  Serious: Yes (Hospitalization)
  Sender: FDA-Public Use
  Company Number: FR-PFIZER INC-2013052613

PATIENT
  Age: 15 Year
  Sex: Female

DRUGS (3)
  1. CELEBREX [Suspect]
     Indication: RHEUMATOID ARTHRITIS
     Dosage: 100 MG, 2X/DAY
     Dates: start: 20130106, end: 20130108
  2. METOJECT [Suspect]
     Indication: RHEUMATOID ARTHRITIS
     Dosage: 12.5 MG
     Dates: start: 201212
  3. DOLIPRANE [Concomitant]
     Dosage: 500 MG

REACTIONS (1)
  - Vascular purpura [Not Recovered/Not Resolved]
